FAERS Safety Report 4388741-6 (Version None)
Quarter: 2004Q3

REPORT INFORMATION
  Report Type: 
  Country: None (occurrence: None)
  Receive Date: 20040701
  Receipt Date: 20040630
  Transmission Date: 20050211
  Serious: Yes (Other)
  Sender: FDA-Public Use
  Company Number: US-GLAXOSMITHKLINE-A0516614A

PATIENT
  Age: 41 Year
  Sex: Female

DRUGS (4)
  1. WELLBUTRIN [Suspect]
     Dosage: 200MG TWICE PER DAY
     Route: 048
  2. SEROQUEL [Concomitant]
  3. NEURONTIN [Concomitant]
  4. TOPAMAX [Concomitant]

REACTIONS (4)
  - ABNORMAL BEHAVIOUR [None]
  - AKATHISIA [None]
  - HALLUCINATION [None]
  - TREMOR [None]
